FAERS Safety Report 8919938 (Version 1)
Quarter: 2012Q4

REPORT INFORMATION
  Report Type: 
  Country: US (occurrence: US)
  Receive Date: 20121121
  Receipt Date: 20121121
  Transmission Date: 20130627
  Serious: No
  Sender: FDA-Public Use
  Company Number: US-BAYER-2012-120887

PATIENT
  Age: 58 Year
  Sex: Female
  Weight: 41.72 kg

DRUGS (4)
  1. ALEVE CAPLET/TABLET,MIDOL EXTENDED RELIEF CAPLET [Suspect]
     Indication: GENERAL BODY PAIN
     Dosage: 2 DF, BID
     Route: 048
     Dates: start: 20121107
  2. ZOFRAN [Concomitant]
  3. KLONOPIN [Concomitant]
  4. SENTINEL PATCH [Concomitant]

REACTIONS (1)
  - Therapeutic response unexpected [None]
